FAERS Safety Report 9773407 (Version 2)
Quarter: 2014Q1

REPORT INFORMATION
  Report Type: Spontaneous
  Country: DE (occurrence: DE)
  Receive Date: 20131219
  Receipt Date: 20140211
  Transmission Date: 20141002
  Serious: Yes (Other)
  Sender: FDA-Public Use
  Company Number: PHHY2013DE148720

PATIENT
  Sex: Male

DRUGS (11)
  1. GILENYA [Suspect]
     Indication: MULTIPLE SCLEROSIS
     Dosage: 0.5 MG, QD
     Route: 048
     Dates: start: 20120611, end: 20131220
  2. SIRDALUD [Concomitant]
  3. LEVETIRACETAM [Concomitant]
  4. PRAMIPEXOLE [Concomitant]
  5. RAMIPRIL [Concomitant]
  6. NOOTROP [Concomitant]
  7. VASOMOTAL [Concomitant]
  8. EBASTEL [Concomitant]
  9. TAMSULOSIN [Concomitant]
  10. VITAMIN D [Concomitant]
  11. PULMICORT [Concomitant]

REACTIONS (3)
  - Liver function test abnormal [Recovering/Resolving]
  - Gamma-glutamyltransferase increased [Recovering/Resolving]
  - Aspartate aminotransferase increased [Recovering/Resolving]
